FAERS Safety Report 18836203 (Version 2)
Quarter: 2021Q1

REPORT INFORMATION
  Report Type: Spontaneous
  Country: CN (occurrence: CN)
  Receive Date: 20210203
  Receipt Date: 20210205
  Transmission Date: 20210419
  Serious: No
  Sender: FDA-Public Use
  Company Number: CN-ASTRAZENECA-2021A020064

PATIENT

DRUGS (1)
  1. FORXIGA [Suspect]
     Active Substance: DAPAGLIFLOZIN
     Indication: BLOOD GLUCOSE INCREASED
     Route: 048

REACTIONS (4)
  - Hypertonia [Unknown]
  - Hypernatraemia [Unknown]
  - Pneumonia [Unknown]
  - Fluid intake reduced [Unknown]
